FAERS Safety Report 6443046-4 (Version None)
Quarter: 2009Q4

REPORT INFORMATION
  Report Type: 
  Country: None (occurrence: None)
  Receive Date: 20091117
  Receipt Date: 20091105
  Transmission Date: 20100525
  Serious: Yes (Other)
  Sender: FDA-Public Use
  Company Number: GB-AMGEN-US365942

PATIENT
  Sex: Female
  Weight: 88.8 kg

DRUGS (9)
  1. ENBREL [Suspect]
     Indication: RHEUMATOID ARTHRITIS
     Route: 058
     Dates: start: 20090501
  2. SIMVASTATIN [Concomitant]
     Route: 048
     Dates: start: 20090501
  3. OMEPRAZOLE [Concomitant]
     Route: 048
     Dates: start: 20080501
  4. CALCIUM CARBONATE/COLECALCIFEROL [Concomitant]
     Dosage: 1 DAILY
     Route: 048
     Dates: start: 19990101
  5. TRAMADOL HCL [Concomitant]
     Route: 048
     Dates: start: 20001201
  6. PARACETAMOL [Concomitant]
     Route: 048
     Dates: start: 20010501
  7. CHLORPHENIRAMINE MALEATE [Concomitant]
     Route: 048
     Dates: start: 20021201
  8. CANDESARTAN CILEXETIL [Concomitant]
     Route: 048
     Dates: start: 20041001
  9. ETORICOXIB [Concomitant]
     Route: 048
     Dates: start: 20040201

REACTIONS (6)
  - ARTHRALGIA [None]
  - EYE PAIN [None]
  - INFECTION [None]
  - JOINT SWELLING [None]
  - RETINAL TEAR [None]
  - VITREOUS DETACHMENT [None]
